FAERS Safety Report 8923579 (Version 1)
Quarter: 2012Q4

REPORT INFORMATION
  Report Type: 
  Country: AT (occurrence: AT)
  Receive Date: 20121123
  Receipt Date: 20121123
  Transmission Date: 20130627
  Serious: Yes (Life-Threatening)
  Sender: FDA-Public Use
  Company Number: PHHY2012AT106060

PATIENT
  Age: 51 Year
  Sex: Male

DRUGS (3)
  1. 5-FLUOROURACIL [Suspect]
     Indication: RECTAL CANCER
     Dosage: 00 mg/m2 bolus i.v. followed by 2,400 mg/m2 continuous infusion over 48 h i.v.
     Route: 042
  2. OXALIPLATIN [Concomitant]
     Indication: RECTAL CANCER
     Dosage: 85 mg/m2, UNK
  3. FOLINIC ACID [Concomitant]
     Indication: RECTAL CANCER
     Dosage: 400 mg/m2, UNK

REACTIONS (8)
  - Vasoconstriction [Recovered/Resolved]
  - Cardiac failure acute [Recovered/Resolved]
  - Chest pain [Recovered/Resolved]
  - Arterial stenosis [Recovered/Resolved]
  - Left ventricular end-diastolic pressure increased [Recovered/Resolved]
  - Coronary ostial stenosis [Recovered/Resolved]
  - Ejection fraction decreased [Recovered/Resolved]
  - Hypokinesia [Recovered/Resolved]
